FAERS Safety Report 6027403-6 (Version None)
Quarter: 2008Q4

REPORT INFORMATION
  Report Type: 
  Country: None (occurrence: None)
  Receive Date: 20081222
  Receipt Date: 20080918
  Transmission Date: 20090506
  Serious: No
  Sender: FDA-Public Use
  Company Number: US-WYE-H06064308

PATIENT
  Age: 36 Year
  Sex: Male

DRUGS (1)
  1. PRISTIQ [Suspect]
     Indication: ANXIETY
     Dosage: 50 MG, FREQUENCY NOT SPECIFIED, ORAL
     Route: 048
     Dates: start: 20080917

REACTIONS (1)
  - INSOMNIA [None]
